FAERS Safety Report 10136178 (Version 1)
Quarter: 2014Q2

REPORT INFORMATION
  Report Type: Spontaneous
  Country: IE (occurrence: IE)
  Receive Date: 20140429
  Receipt Date: 20140429
  Transmission Date: 20141212
  Serious: Yes (Death)
  Sender: FDA-Public Use
  Company Number: IE-AMGEN-IRLSP2014030322

PATIENT
  Age: 69 Year
  Sex: Male

DRUGS (1)
  1. NEULASTA [Suspect]
     Indication: LUNG NEOPLASM MALIGNANT
     Dosage: 6 MG/0.6ML POST CHEMO EVERY 3 WEEKS
     Route: 058
     Dates: start: 20131003, end: 20131003

REACTIONS (1)
  - Death [Fatal]
